FAERS Safety Report 5811839-X (Version None)
Quarter: 2008Q3

REPORT INFORMATION
  Report Type: 
  Country: None (occurrence: None)
  Receive Date: 20080715
  Receipt Date: 20080715
  Transmission Date: 20090109
  Serious: Yes (Disabling, Other)
  Sender: FDA-Public Use
  Company Number: None

PATIENT
  Age: 63 Year
  Sex: Male
  Weight: 58.9676 kg

DRUGS (2)
  1. SIMVASTATIN TABLET 20 MG AUROBINDO [Suspect]
     Indication: BLOOD CHOLESTEROL NORMAL
     Dates: start: 20080421, end: 20080713
  2. SIMVASTATIN TABLET 20 MG AUROBINDO [Suspect]
     Indication: HIGH DENSITY LIPOPROTEIN DECREASED
     Dates: start: 20080421, end: 20080713

REACTIONS (2)
  - ARTHRALGIA [None]
  - MYALGIA [None]
